FAERS Safety Report 13225828 (Version 2)
Quarter: 2017Q1

REPORT INFORMATION
  Report Type: Spontaneous
  Country: GR (occurrence: GR)
  Receive Date: 20170213
  Receipt Date: 20170214
  Transmission Date: 20170428
  Serious: Yes (Death, Hospitalization)
  Sender: FDA-Public Use
  Company Number: GR-B.I. PHARMACEUTICALS,INC./RIDGEFIELD-2016-BI-085525

PATIENT
  Age: 87 Year
  Sex: Female

DRUGS (6)
  1. APROVEL [Concomitant]
     Active Substance: IRBESARTAN
     Indication: HYPERTENSION
     Route: 048
  2. PRADAXA [Suspect]
     Active Substance: DABIGATRAN ETEXILATE MESYLATE
     Indication: ATRIAL FIBRILLATION
  3. LASIX [Concomitant]
     Active Substance: FUROSEMIDE
     Indication: DIURETIC THERAPY
     Route: 048
  4. CATAPRESAN [Concomitant]
     Active Substance: CLONIDINE
     Indication: HYPERTENSION
     Route: 048
  5. PRADAXA [Suspect]
     Active Substance: DABIGATRAN ETEXILATE MESYLATE
     Indication: CEREBROVASCULAR ACCIDENT PROPHYLAXIS
     Route: 048
  6. CARVEPEN [Concomitant]
     Active Substance: CARVEDILOL
     Indication: HYPERTENSION
     Route: 048

REACTIONS (4)
  - Brain oedema [Fatal]
  - Cardio-respiratory arrest [Fatal]
  - Basal ganglia haemorrhage [Fatal]
  - Altered state of consciousness [Unknown]

NARRATIVE: CASE EVENT DATE: 20161214
